FAERS Safety Report 8002158-4 (Version None)
Quarter: 2011Q4

REPORT INFORMATION
  Report Type: 
  Country: None (occurrence: None)
  Receive Date: 20111222
  Receipt Date: 20111212
  Transmission Date: 20120403
  Serious: Yes (Hospitalization)
  Sender: FDA-Public Use
  Company Number: JP-PFIZER INC-2011291393

PATIENT
  Age: 70 Year
  Sex: Male
  Weight: 156.6 kg

DRUGS (10)
  1. LEUCOVORIN CALCIUM [Suspect]
     Indication: COLORECTAL CANCER METASTATIC
     Dosage: UNK
     Dates: start: 20111005, end: 20111005
  2. OLMESARTAN MEDOXOMIL [Concomitant]
     Indication: PROTEINURIA
     Dosage: 40 MG, UNK
  3. EPLERENONE [Concomitant]
     Indication: HYPERTENSION
     Dosage: UNK
     Dates: start: 20111116
  4. TORASEMIDE [Concomitant]
     Indication: WEIGHT INCREASED
     Dosage: UNK
     Dates: start: 20111104
  5. AMLODIPINE BESILATE [Concomitant]
     Dosage: 10 MG, UNK
  6. IRINOTECAN HCL [Suspect]
     Indication: COLORECTAL CANCER METASTATIC
     Dosage: UNK
     Dates: start: 20111005, end: 20111005
  7. FLUOROURACIL [Suspect]
     Indication: COLORECTAL CANCER METASTATIC
     Dosage: UNK
     Dates: start: 20111005, end: 20111005
  8. OLMESARTAN MEDOXOMIL [Concomitant]
     Indication: HYPERTENSION
     Dosage: 20 MG, UNK
  9. AMLODIPINE BESILATE [Concomitant]
     Dosage: 5 MG, UNK
  10. BLINDED THERAPY [Suspect]
     Indication: COLORECTAL CANCER METASTATIC
     Dosage: UNK
     Route: 042
     Dates: start: 20111005, end: 20111018

REACTIONS (2)
  - NEPHROTIC SYNDROME [None]
  - PELVIC INFLAMMATORY DISEASE [None]
